FAERS Safety Report 8214556-4 (Version None)
Quarter: 2012Q1

REPORT INFORMATION
  Report Type: 
  Country: None (occurrence: None)
  Receive Date: 20120228
  Receipt Date: 20110119
  Transmission Date: 20120608
  Serious: Yes (Other)
  Sender: FDA-Public Use
  Company Number: RB-16946-2010

PATIENT
  Age: 36 Year
  Sex: Male

DRUGS (5)
  1. SUBOXONE [Suspect]
     Indication: DRUG DEPENDENCE
     Dosage: (4 MG BID SUBLINGUAL), (1 MG BID SUBLINGUAL)
     Route: 060
     Dates: start: 20101011, end: 20101001
  2. SUBOXONE [Suspect]
     Indication: DRUG DEPENDENCE
     Dosage: (4 MG BID SUBLINGUAL), (1 MG BID SUBLINGUAL)
     Route: 060
     Dates: start: 20101022
  3. METFORMIN HCL [Concomitant]
  4. PRAVASTATIN [Concomitant]
  5. WELLBUTRIN [Concomitant]

REACTIONS (4)
  - HYPERHIDROSIS [None]
  - INTENTIONAL DRUG MISUSE [None]
  - RESPIRATORY DEPRESSION [None]
  - BLOOD POTASSIUM DECREASED [None]
